FAERS Safety Report 9029918 (Version 1)
Quarter: 2013Q1

REPORT INFORMATION
  Report Type: Spontaneous
  Country: GB (occurrence: GB)
  Receive Date: 20130124
  Receipt Date: 20130124
  Transmission Date: 20140127
  Serious: Yes (Hospitalization, Other)
  Sender: FDA-Public Use
  Company Number: GB-B.I. PHARMACEUTICALS,INC./RIDGEFIELD-2013-UK-00078UK

PATIENT
  Age: 83 Year
  Sex: Female
  Weight: 79.2 kg

DRUGS (11)
  1. PRADAXA [Suspect]
     Dosage: 220 MG
     Route: 048
     Dates: start: 20121213
  2. AMIODARONE [Concomitant]
     Dosage: 200 MG
  3. AMOXICILLIN\CLAVULANATE POTASSIUM [Concomitant]
  4. FERROUS SULPHATE [Concomitant]
     Dosage: 600 MG
  5. LEVOTHYROXINE [Concomitant]
     Dosage: 100 MCG
  6. MOVICOL [Concomitant]
  7. OMEPRAZOLE [Concomitant]
     Dosage: 20 MG
  8. PARACETAMOL [Concomitant]
     Dosage: 4 G
  9. RAMIPRIL [Concomitant]
     Dosage: 1.25 MG
  10. SIMVASTATIN [Concomitant]
     Dosage: 20 MG
  11. TRAMADOL [Concomitant]
     Dosage: 50 MG

REACTIONS (1)
  - Ischaemic stroke [Recovered/Resolved with Sequelae]
